FAERS Safety Report 12664336 (Version 2)
Quarter: 2016Q3

REPORT INFORMATION
  Report Type: Spontaneous
  Country: ES (occurrence: ES)
  Receive Date: 20160818
  Receipt Date: 20160818
  Transmission Date: 20161109
  Serious: Yes (Other)
  Sender: FDA-Public Use
  Company Number: ES-009507513-1608ESP005545

PATIENT
  Age: 20 Year
  Sex: Male

DRUGS (3)
  1. PROSCAR [Suspect]
     Active Substance: FINASTERIDE
     Indication: ALOPECIA
     Dosage: SPLIT TABLET TO TAKE APPROXIMATELY 1 MG
     Route: 048
     Dates: start: 2006, end: 2009
  2. CALCIUM (UNSPECIFIED) [Concomitant]
     Active Substance: CALCIUM
     Dosage: UNK
  3. PROPECIA [Suspect]
     Active Substance: FINASTERIDE
     Indication: ALOPECIA
     Dosage: 1 MG, QD
     Route: 048
     Dates: start: 1999, end: 2006

REACTIONS (19)
  - Arthralgia [Not Recovered/Not Resolved]
  - Loss of libido [Not Recovered/Not Resolved]
  - Prostatic pain [Not Recovered/Not Resolved]
  - Hyperkeratosis [Recovered/Resolved]
  - Osteoporosis [Not Recovered/Not Resolved]
  - Hepatic pain [Not Recovered/Not Resolved]
  - Erectile dysfunction [Not Recovered/Not Resolved]
  - Calcinosis [Unknown]
  - Wrong technique in product usage process [Unknown]
  - Cafe au lait spots [Not Recovered/Not Resolved]
  - Dermatitis [Not Recovered/Not Resolved]
  - Asthenia [Not Recovered/Not Resolved]
  - Sperm concentration decreased [Unknown]
  - Pruritus [Not Recovered/Not Resolved]
  - Dry skin [Recovered/Resolved]
  - Quality of life decreased [Unknown]
  - Blood testosterone decreased [Unknown]
  - Skin wound [Recovered/Resolved]
  - Drug prescribing error [Unknown]

NARRATIVE: CASE EVENT DATE: 1999
